FAERS Safety Report 6838769-9 (Version None)
Quarter: 2010Q3

REPORT INFORMATION
  Report Type: 
  Country: None (occurrence: None)
  Receive Date: 20100713
  Receipt Date: 20070626
  Transmission Date: 20110219
  Serious: No
  Sender: FDA-Public Use
  Company Number: US-PFIZER INC-2007041738

PATIENT
  Age: 63 Year
  Sex: Male
  Weight: 94.09 kg

DRUGS (11)
  1. CHANTIX [Suspect]
     Indication: SMOKING CESSATION THERAPY
     Route: 048
     Dates: start: 20070420, end: 20070601
  2. METOPROLOL [Concomitant]
  3. TRAZODONE HYDROCHLORIDE [Concomitant]
  4. SERTRALINE HCL [Concomitant]
  5. LEVOSALBUTAMOL [Concomitant]
     Route: 055
  6. FORMOTEROL [Concomitant]
  7. STATINS [Concomitant]
  8. DRUG, UNSPECIFIED [Concomitant]
     Route: 055
  9. CYPROHEPTADINE HCL [Concomitant]
  10. SIMVASTATIN [Concomitant]
  11. OMEPRAZOLE [Concomitant]

REACTIONS (2)
  - ARTHRALGIA [None]
  - MYALGIA [None]
